FAERS Safety Report 9052327 (Version 2)
Quarter: 2013Q1

REPORT INFORMATION
  Report Type: Report from Study
  Country: CA (occurrence: CA)
  Receive Date: 20130206
  Receipt Date: 20130301
  Transmission Date: 20140127
  Serious: No
  Sender: FDA-Public Use
  Company Number: CA-JNJFOC-20130113099

PATIENT
  Sex: Female
  Weight: 98.3 kg

DRUGS (1)
  1. REMICADE [Suspect]
     Indication: COLITIS
     Route: 042
     Dates: start: 201112

REACTIONS (1)
  - Poor quality sleep [Recovered/Resolved]
